FAERS Safety Report 14908975 (Version 1)
Quarter: 2018Q2

REPORT INFORMATION
  Report Type: Spontaneous
  Country: AU (occurrence: AU)
  Receive Date: 20180517
  Receipt Date: 20180517
  Transmission Date: 20180711
  Serious: Yes (Other)
  Sender: FDA-Public Use
  Company Number: AU-SA-2018SA137716

PATIENT
  Sex: Female

DRUGS (2)
  1. AVAPRO HCT [Suspect]
     Active Substance: HYDROCHLOROTHIAZIDE\IRBESARTAN
     Route: 048
  2. MICARDIS [Suspect]
     Active Substance: TELMISARTAN
     Route: 065

REACTIONS (7)
  - Condition aggravated [Unknown]
  - Hypoaesthesia [Unknown]
  - Renal impairment [Unknown]
  - Dysstasia [Unknown]
  - Rash [Unknown]
  - Chromaturia [Unknown]
  - Dysuria [Unknown]
